FAERS Safety Report 25971535 (Version 1)
Quarter: 2025Q4

REPORT INFORMATION
  Report Type: Report from Study
  Country: EU (occurrence: EU)
  Receive Date: 20251029
  Receipt Date: 20251029
  Transmission Date: 20260117
  Serious: Yes (Hospitalization)
  Sender: JOHNSON AND JOHNSON
  Company Number: EU-CELLTRION INC.-2025CZ016871

PATIENT
  Age: 50 Year
  Sex: Male
  Weight: 91 kg

DRUGS (10)
  1. INFLIXIMAB [Suspect]
     Active Substance: INFLIXIMAB
     Indication: Ankylosing spondylitis
     Dosage: 400 MG ONCE PER 6 WEEKS
     Dates: start: 20241014, end: 20250407
  2. INFLIXIMAB [Suspect]
     Active Substance: INFLIXIMAB
     Dosage: 400 MG ONCE PER 6 WEEKS
     Dates: start: 20240607
  3. INFLIXIMAB [Suspect]
     Active Substance: INFLIXIMAB
     Dosage: 400 MG ONCE PER 6 WEEKS
     Dates: start: 20240719
  4. INFLIXIMAB [Suspect]
     Active Substance: INFLIXIMAB
     Dosage: 400 MG ONCE PER 6 WEEKS
     Dates: start: 20240829
  5. INFLIXIMAB [Suspect]
     Active Substance: INFLIXIMAB
     Dosage: 400 MG ONCE PER 6 WEEKS
     Dates: start: 20241018
  6. INFLIXIMAB [Suspect]
     Active Substance: INFLIXIMAB
     Dosage: 400 MG ONCE PER 6 WEEKS
     Dates: start: 20241129
  7. INFLIXIMAB [Suspect]
     Active Substance: INFLIXIMAB
     Dosage: 400 MG ONCE PER 6 WEEKS
     Dates: start: 20250110
  8. INFLIXIMAB [Suspect]
     Active Substance: INFLIXIMAB
     Dosage: 400 MG ONCE PER 6 WEEKS
     Dates: start: 20250221
  9. INFLIXIMAB [Suspect]
     Active Substance: INFLIXIMAB
     Dosage: 400 MG ONCE PER 6 WEEKS
     Dates: start: 20250404
  10. INFLIXIMAB [Suspect]
     Active Substance: INFLIXIMAB
     Dosage: 400 MG ONCE PER 6 WEEKS
     Dates: start: 20250519

REACTIONS (1)
  - Pancreatitis acute [Recovered/Resolved]

NARRATIVE: CASE EVENT DATE: 20250509
